FAERS Safety Report 4900426-3 (Version None)
Quarter: 2006Q1

REPORT INFORMATION
  Report Type: 
  Country: None (occurrence: None)
  Receive Date: 20060201
  Receipt Date: 20060120
  Transmission Date: 20060701
  Serious: Yes (Other)
  Sender: FDA-Public Use
  Company Number: 221345

PATIENT
  Age: 8 Year
  Sex: Female
  Weight: 102.2 kg

DRUGS (1)
  1. NUTROPIN AQ [Suspect]
     Indication: PRADER-WILLI SYNDROME
     Dosage: 1.5 MG, SUBCUTANEOUS
     Route: 058
     Dates: start: 20040118

REACTIONS (2)
  - DIABETES MELLITUS [None]
  - WEIGHT INCREASED [None]
